FAERS Safety Report 10079350 (Version 1)
Quarter: 2014Q2

REPORT INFORMATION
  Report Type: Spontaneous
  Country: US (occurrence: None)
  Receive Date: 20140414
  Receipt Date: 20140414
  Transmission Date: 20141212
  Serious: Yes (Other)
  Sender: FDA-Public Use
  Company Number: None

PATIENT
  Age: 68 Year
  Sex: Female
  Weight: 58.06 kg

DRUGS (10)
  1. RISPERIDONE [Suspect]
     Indication: BIPOLAR DISORDER
     Dosage: 1 MG TABLET MY/1 PILL (TABLET), ONCE AT BEDTIME, MOUTH
     Route: 048
     Dates: start: 20100608, end: 201010
  2. METOPEROL SUCCER 100 MG [Concomitant]
  3. LISINIPRIL 20 MG TAB [Concomitant]
  4. HYDROTHIACHOROL 25 MG TAB [Concomitant]
  5. SIMVISTATIN 20 MG TAB [Concomitant]
  6. ONE A DAY TAB [Concomitant]
  7. ONE C [Concomitant]
  8. CALCIUM 600 MG [Concomitant]
  9. D3  1000 MG [Concomitant]
  10. ECOTRIN 81 MG [Concomitant]

REACTIONS (2)
  - Muscle twitching [None]
  - Insomnia [None]
